FAERS Safety Report 10063418 (Version 1)
Quarter: 2014Q2

REPORT INFORMATION
  Report Type: Spontaneous
  Country: US (occurrence: US)
  Receive Date: 20140407
  Receipt Date: 20140407
  Transmission Date: 20141212
  Serious: No
  Sender: FDA-Public Use
  Company Number: US-PFIZER INC-2014096586

PATIENT
  Age: 72 Year
  Sex: Male

DRUGS (1)
  1. XALKORI [Suspect]
     Indication: NEOPLASM MALIGNANT
     Dosage: 250 MG, 1X/DAY
     Dates: start: 20130925

REACTIONS (2)
  - Disease progression [Unknown]
  - Neoplasm malignant [Unknown]
